FAERS Safety Report 21671686 (Version 2)
Quarter: 2022Q4

REPORT INFORMATION
  Report Type: Spontaneous
  Country: US (occurrence: US)
  Receive Date: 20221202
  Receipt Date: 20221203
  Transmission Date: 20230113
  Serious: No
  Sender: FDA-Public Use
  Company Number: US-JNJFOC-20221200001

PATIENT
  Age: 67 Year
  Sex: Male

DRUGS (7)
  1. ERLEADA [Suspect]
     Active Substance: APALUTAMIDE
     Indication: Prostate cancer
     Route: 048
     Dates: start: 20221118
  2. PROLIA [Concomitant]
     Active Substance: DENOSUMAB
  3. ELIGARD [Concomitant]
     Active Substance: LEUPROLIDE ACETATE
  4. ROSUVASTATIN [Concomitant]
     Active Substance: ROSUVASTATIN
  5. TRAZODONE [Concomitant]
     Active Substance: TRAZODONE HYDROCHLORIDE
  6. LOSARTAN POTASSIUM [Concomitant]
     Active Substance: LOSARTAN POTASSIUM
  7. OMEZOLAN [OMEPRAZOLE] [Concomitant]

REACTIONS (2)
  - Rash [Unknown]
  - Fatigue [Unknown]
